FAERS Safety Report 4498206-9 (Version None)
Quarter: 2004Q3

REPORT INFORMATION
  Report Type: 
  Country: None (occurrence: None)
  Receive Date: 20040927
  Receipt Date: 20040607
  Transmission Date: 20050211
  Serious: No
  Sender: FDA-Public Use
  Company Number: USA040669443

PATIENT
  Age: 68 Year
  Sex: Female

DRUGS (9)
  1. STRATTERA [Suspect]
     Indication: MEMORY IMPAIRMENT
     Dosage: 40 MG/1 IN THE MORNING
     Dates: start: 20040601
  2. VIOXX [Concomitant]
  3. ULTRAM [Concomitant]
  4. DURAGESIC [Concomitant]
  5. LOTENSIN [Concomitant]
  6. TRICOR [Concomitant]
  7. PREVACID (LANSOPRAZOLE) C [Concomitant]
  8. THYROXINE [Concomitant]
  9. MAXZIDE [Concomitant]

REACTIONS (2)
  - DECREASED APPETITE [None]
  - FEELING ABNORMAL [None]
